FAERS Safety Report 7988990 (Version 2)
Quarter: 2012Q4

REPORT INFORMATION
  Report Type: 
  Country: CA (occurrence: CA)
  Receive Date: 20110613
  Receipt Date: 20121106
  Transmission Date: 20130627
  Serious: Yes (Death, Other)
  Sender: FDA-Public Use
  Company Number: PHHY2009CA01728

PATIENT
  Sex: Male

DRUGS (1)
  1. SANDOSTATIN LAR [Suspect]
     Indication: HEPATIC NEOPLASM MALIGNANT
     Dosage: 30 mg, every four weeks
     Route: 030
     Dates: start: 20081023, end: 20081228

REACTIONS (11)
  - Death [Fatal]
  - Weight decreased [Unknown]
  - Aphagia [Unknown]
  - Thirst decreased [Unknown]
  - Hypersomnia [Unknown]
  - Oedema peripheral [Unknown]
  - Reflux gastritis [Unknown]
  - Swelling [Unknown]
  - Pain in extremity [Unknown]
  - Abdominal distension [Unknown]
  - Vomiting [Unknown]
